FAERS Safety Report 14492160 (Version 2)
Quarter: 2018Q1

REPORT INFORMATION
  Report Type: Report from Study
  Country: US (occurrence: US)
  Receive Date: 20180206
  Receipt Date: 20180215
  Transmission Date: 20180509
  Serious: Yes (Hospitalization, Other)
  Sender: FDA-Public Use
  Company Number: US-GILEAD-2017-0313362

PATIENT
  Age: 74 Year
  Sex: Male
  Weight: 68.48 kg

DRUGS (24)
  1. TOPROL XL [Concomitant]
     Active Substance: METOPROLOL SUCCINATE
  2. FLONASE                            /00908302/ [Concomitant]
     Active Substance: MOMETASONE FUROATE
  3. LASIX [Concomitant]
     Active Substance: FUROSEMIDE
  4. ATROVENT [Concomitant]
     Active Substance: IPRATROPIUM BROMIDE
  5. MATZIM LA [Concomitant]
     Active Substance: DILTIAZEM HYDROCHLORIDE
  6. PROTONIX                           /00661201/ [Concomitant]
     Active Substance: OMEPRAZOLE
  7. RENO                               /00028904/ [Concomitant]
     Active Substance: DIATRIZOATE MEGLUMINE
  8. AMBRISENTAN [Suspect]
     Active Substance: AMBRISENTAN
     Indication: PULMONARY ARTERIAL HYPERTENSION
     Dosage: 5 MG, BID
     Route: 048
     Dates: start: 20171218
  9. ADVAIR HFA [Concomitant]
     Active Substance: FLUTICASONE PROPIONATE\SALMETEROL XINAFOATE
  10. PROVENTIL [Concomitant]
     Active Substance: ALBUTEROL
  11. AVODART [Concomitant]
     Active Substance: DUTASTERIDE
  12. TYLENOL [Concomitant]
     Active Substance: ACETAMINOPHEN
  13. MUCINEX [Concomitant]
     Active Substance: GUAIFENESIN
  14. PRINIVIL [Concomitant]
     Active Substance: LISINOPRIL
  15. MYCOSTATIN [Concomitant]
     Active Substance: NYSTATIN
  16. FISH OIL [Concomitant]
     Active Substance: FISH OIL
  17. CALCIUM ANTACID [Concomitant]
     Active Substance: CALCIUM CARBONATE
  18. OXYGEN. [Concomitant]
     Active Substance: OXYGEN
  19. KENALOG [Concomitant]
     Active Substance: TRIAMCINOLONE ACETONIDE
  20. PRAVACHOL [Concomitant]
     Active Substance: PRAVASTATIN SODIUM
  21. VITAMIN D3 [Concomitant]
     Active Substance: CHOLECALCIFEROL
  22. TADALAFIL [Concomitant]
     Active Substance: TADALAFIL
  23. ZYLOPRIM [Concomitant]
     Active Substance: ALLOPURINOL
  24. TIOTROPIUM [Concomitant]
     Active Substance: TIOTROPIUM

REACTIONS (12)
  - Pulmonary hypertension [Unknown]
  - Product use issue [Unknown]
  - Off label use [Unknown]
  - Chronic obstructive pulmonary disease [Unknown]
  - Influenza [Unknown]
  - Hypoxia [Unknown]
  - Swelling [Recovering/Resolving]
  - Oxygen consumption increased [Unknown]
  - Hypoacusis [Unknown]
  - Dyspnoea [Unknown]
  - Feeling abnormal [Unknown]
  - Oedema [Recovering/Resolving]
